FAERS Safety Report 6152018-9 (Version None)
Quarter: 2009Q2

REPORT INFORMATION
  Report Type: 
  Country: None (occurrence: None)
  Receive Date: 20090410
  Receipt Date: 20090402
  Transmission Date: 20091009
  Serious: Yes (Hospitalization)
  Sender: FDA-Public Use
  Company Number: PHEH2009US03225

PATIENT

DRUGS (2)
  1. TEKTURNA [Suspect]
     Dosage: UNK
  2. DIOVAN [Suspect]

REACTIONS (2)
  - BLOOD POTASSIUM INCREASED [None]
  - MALAISE [None]
